FAERS Safety Report 4267120-6 (Version None)
Quarter: 2004Q1

REPORT INFORMATION
  Report Type: 
  Country: None (occurrence: None)
  Receive Date: 20040107
  Receipt Date: 20031101
  Transmission Date: 20041129
  Serious: Yes (Hospitalization, Other)
  Sender: FDA-Public Use
  Company Number: KII-2003-0006634

PATIENT
  Age: 44 Year
  Sex: Female

DRUGS (5)
  1. OXYCODONE HCL [Suspect]
     Dosage: ORAL
     Route: 048
  2. BENZODIAZEPINE DERIVATIVES() [Suspect]
     Dosage: ORAL
     Route: 048
  3. MUSCLE RELAXANTS() [Suspect]
     Dosage: ORAL
     Route: 048
  4. ANTIDEPRESSANTS() [Suspect]
     Dosage: ORAL
     Route: 048
  5. VALPROIC ACID [Suspect]
     Dosage: ORAL
     Route: 048

REACTIONS (8)
  - AREFLEXIA [None]
  - BRADYCARDIA [None]
  - COMA [None]
  - CRYING [None]
  - INTENTIONAL OVERDOSE [None]
  - MULTIPLE DRUG OVERDOSE [None]
  - RESPIRATORY DEPRESSION [None]
  - SOMNOLENCE [None]
